FAERS Safety Report 6871500-X (Version None)
Quarter: 2010Q3

REPORT INFORMATION
  Report Type: 
  Country: None (occurrence: None)
  Receive Date: 20100723
  Receipt Date: 20100713
  Transmission Date: 20110219
  Serious: Yes (Hospitalization)
  Sender: FDA-Public Use
  Company Number: IT-PFIZER INC-2010087574

PATIENT
  Age: 45 Year
  Sex: Male

DRUGS (2)
  1. CARDURA [Suspect]
     Indication: HYPERTENSION
     Dosage: 2 MG, X/DAY
     Route: 048
     Dates: start: 20100622, end: 20100623
  2. PAROXETINE [Concomitant]
     Indication: DEPRESSION
     Dosage: UNK
     Route: 048

REACTIONS (2)
  - ASTHMA [None]
  - URTICARIA [None]
